FAERS Safety Report 9716745 (Version 3)
Quarter: 2014Q1

REPORT INFORMATION
  Report Type: Spontaneous
  Country: GB (occurrence: GB)
  Receive Date: 20131127
  Receipt Date: 20140324
  Transmission Date: 20141002
  Serious: Yes (Other)
  Sender: FDA-Public Use
  Company Number: GB-WATSON-2013-21589

PATIENT
  Age: 40 Year
  Sex: Male

DRUGS (4)
  1. RIFAMPICIN (UNKNOWN) [Suspect]
     Indication: ENDOCARDITIS STAPHYLOCOCCAL
     Dosage: UNK
     Route: 065
     Dates: start: 201002, end: 201109
  2. VANCOMYCIN (UNKNOWN) [Suspect]
     Indication: PRODUCT USED FOR UNKNOWN INDICATION
     Dosage: 4000 MG, UNKNOWN
     Route: 042
     Dates: start: 201002, end: 201010
  3. CUBICIN [Suspect]
     Indication: ENDOCARDITIS STAPHYLOCOCCAL
     Dosage: 6 MG/KG, UNKNOWN
     Route: 042
     Dates: start: 201008, end: 201009
  4. CUBICIN [Suspect]
     Indication: OFF LABEL USE
     Dosage: 10 MG/KG, UNKNOWN
     Route: 042
     Dates: start: 201010, end: 201106

REACTIONS (5)
  - Endocarditis staphylococcal [Recovered/Resolved]
  - Staphylococcal bacteraemia [Recovered/Resolved]
  - Cardiac valve vegetation [Recovering/Resolving]
  - Embolism [Recovering/Resolving]
  - No therapeutic response [Unknown]
